FAERS Safety Report 4589350-6 (Version None)
Quarter: 2005Q1

REPORT INFORMATION
  Report Type: 
  Country: None (occurrence: None)
  Receive Date: 20050216
  Receipt Date: 20050216
  Transmission Date: 20050727
  Serious: Yes (Other)
  Sender: FDA-Public Use
  Company Number: None

PATIENT
  Age: 71 Year
  Sex: Male
  Weight: 79.3795 kg

DRUGS (2)
  1. DIOVAN [Suspect]
     Dosage: EVERY/DAY AS NEEDED
  2. VIAGRA [Suspect]
     Dosage: AS NEEDED

REACTIONS (4)
  - CHEST DISCOMFORT [None]
  - COLD SWEAT [None]
  - DIZZINESS [None]
  - NAUSEA [None]
